FAERS Safety Report 22215583 (Version 1)
Quarter: 2023Q2

REPORT INFORMATION
  Report Type: Spontaneous
  Country: DE (occurrence: DE)
  Receive Date: 20230416
  Receipt Date: 20230416
  Transmission Date: 20230722
  Serious: Yes (Other)
  Sender: FDA-Public Use
  Company Number: None

PATIENT
  Age: 35 Year
  Sex: Male
  Weight: 102 kg

DRUGS (1)
  1. OMEPRAZOLE [Suspect]
     Active Substance: OMEPRAZOLE
     Indication: Aphonia
     Dosage: 1 TABLETTE AM TAG VOR DEM ESSEN
     Route: 048
     Dates: start: 20230220, end: 20230307

REACTIONS (5)
  - Abdominal pain [Recovering/Resolving]
  - Abdominal pain lower [Recovering/Resolving]
  - Constipation [Recovering/Resolving]
  - Diverticulitis [Recovering/Resolving]
  - Dyspepsia [Recovering/Resolving]

NARRATIVE: CASE EVENT DATE: 20230317
